FAERS Safety Report 6942814-X (Version None)
Quarter: 2010Q3

REPORT INFORMATION
  Report Type: 
  Country: None (occurrence: None)
  Receive Date: 20100826
  Receipt Date: 20100818
  Transmission Date: 20110219
  Serious: Yes (Other)
  Sender: FDA-Public Use
  Company Number: AU-BAXTER-2010BH021929

PATIENT
  Sex: Female

DRUGS (4)
  1. SODIUM CHLORIDE 0.9% IN PLASTIC CONTAINER [Suspect]
     Indication: MEDICATION DILUTION
     Route: 065
     Dates: start: 20100729
  2. CARBOPLATIN [Suspect]
     Indication: CHEMOTHERAPY
     Route: 065
     Dates: start: 20100729
  3. TAXOTERE [Suspect]
     Indication: CHEMOTHERAPY
     Route: 065
     Dates: start: 20100729
  4. TRASTUZUMAB [Suspect]
     Indication: CHEMOTHERAPY
     Route: 065
     Dates: start: 20100729

REACTIONS (2)
  - FEBRILE NEUTROPENIA [None]
  - MUCOSAL INFLAMMATION [None]
